FAERS Safety Report 17354250 (Version 1)
Quarter: 2020Q1

REPORT INFORMATION
  Report Type: Spontaneous
  Country: ES (occurrence: ES)
  Receive Date: 20200131
  Receipt Date: 20200131
  Transmission Date: 20200409
  Serious: Yes (Other)
  Sender: FDA-Public Use
  Company Number: ES-OTSUKA-2020_002806

PATIENT
  Age: 51 Year
  Sex: Male

DRUGS (5)
  1. ABILIFY MAINTENA [Suspect]
     Active Substance: ARIPIPRAZOLE
     Indication: PSYCHOTIC DISORDER
     Dosage: 300 MG, QM
     Route: 030
     Dates: start: 20190117, end: 20190702
  2. ABILIFY MAINTENA [Suspect]
     Active Substance: ARIPIPRAZOLE
     Dosage: 400 MG, QM
     Route: 030
     Dates: start: 20180827, end: 20190117
  3. CANDESARTAN CINFA [Concomitant]
     Indication: PRODUCT USED FOR UNKNOWN INDICATION
     Dosage: 16 MG, QD
     Route: 048
     Dates: start: 20180416
  4. LEPONEX [Concomitant]
     Active Substance: CLOZAPINE
     Indication: PSYCHOTIC DISORDER
     Dosage: 100 MG, QD
     Route: 048
  5. DIAZEPAM. [Concomitant]
     Active Substance: DIAZEPAM
     Indication: PRODUCT USED FOR UNKNOWN INDICATION
     Dosage: 2.5 MG, UNK
     Route: 048

REACTIONS (2)
  - Product use in unapproved indication [Unknown]
  - Fat necrosis [Recovering/Resolving]

NARRATIVE: CASE EVENT DATE: 20190117
